FAERS Safety Report 6395035-6 (Version None)
Quarter: 2009Q4

REPORT INFORMATION
  Report Type: 
  Country: None (occurrence: None)
  Receive Date: 20091009
  Receipt Date: 20091008
  Transmission Date: 20100525
  Serious: Yes (Death)
  Sender: FDA-Public Use
  Company Number: US-EISAI INC.-E2020-05326-SPO-US

PATIENT
  Age: 94 Year
  Sex: Female

DRUGS (3)
  1. ARICEPT [Interacting]
     Indication: DRUG USE FOR UNKNOWN INDICATION
     Route: 048
  2. ARICEPT [Interacting]
     Dosage: UNKNOWN
     Route: 048
  3. METOPROLOL SUCCINATE [Suspect]
     Route: 048

REACTIONS (6)
  - ACCIDENTAL OVERDOSE [None]
  - BRADYCARDIA [None]
  - COMA [None]
  - DRUG INTERACTION [None]
  - HYPOGLYCAEMIA [None]
  - HYPOTENSION [None]
